FAERS Safety Report 10155828 (Version 1)
Quarter: 2014Q2

REPORT INFORMATION
  Report Type: Report from Study
  Country: CA (occurrence: CA)
  Receive Date: 20140506
  Receipt Date: 20140506
  Transmission Date: 20141212
  Serious: Yes (Other)
  Sender: FDA-Public Use
  Company Number: CA-ABBVIE-14P-028-1230386-00

PATIENT
  Sex: Female

DRUGS (1)
  1. HUMIRA [Suspect]
     Indication: CROHN^S DISEASE
     Route: 058
     Dates: start: 20120118

REACTIONS (3)
  - Intestinal obstruction [Recovered/Resolved]
  - Crohn^s disease [Recovered/Resolved]
  - Crohn^s disease [Not Recovered/Not Resolved]
